APPROVED DRUG PRODUCT: LITHIUM CITRATE
Active Ingredient: LITHIUM CITRATE
Strength: EQ 300MG CARBONATE/5ML **Federal Register determination that product was not discontinued or withdrawn for safety or effectiveness reasons**
Dosage Form/Route: SYRUP;ORAL
Application: N018421 | Product #001
Applicant: HIKMA PHARMACEUTICALS USA INC
Approved: Approved Prior to Jan 1, 1982 | RLD: Yes | RS: No | Type: DISCN